FAERS Safety Report 7559842-6 (Version None)
Quarter: 2011Q2

REPORT INFORMATION
  Report Type: 
  Country: None (occurrence: None)
  Receive Date: 20110621
  Receipt Date: 20110613
  Transmission Date: 20111010
  Serious: Yes (Other)
  Sender: FDA-Public Use
  Company Number: PHHY2011TR53369

PATIENT
  Age: 12 Year
  Sex: Male

DRUGS (4)
  1. PREDNISONE [Suspect]
     Indication: NON-HODGKIN'S LYMPHOMA
  2. METHOTREXATE [Suspect]
     Indication: NON-HODGKIN'S LYMPHOMA
     Dosage: 5 G/M2
  3. CYTARABINE [Suspect]
     Indication: NON-HODGKIN'S LYMPHOMA
  4. DEXAMETHASONE [Suspect]
     Indication: NON-HODGKIN'S LYMPHOMA
     Dosage: 20 MG/M2, / DAY

REACTIONS (5)
  - SPEECH DISORDER [None]
  - HEADACHE [None]
  - POSTERIOR REVERSIBLE ENCEPHALOPATHY SYNDROME [None]
  - BLOOD PRESSURE INCREASED [None]
  - CONVULSION [None]
